FAERS Safety Report 7906745-0 (Version None)
Quarter: 2011Q4

REPORT INFORMATION
  Report Type: 
  Country: None (occurrence: None)
  Receive Date: 20111110
  Receipt Date: 20111108
  Transmission Date: 20120403
  Serious: No
  Sender: FDA-Public Use
  Company Number: US-TEVA-308486USA

PATIENT
  Sex: Female
  Weight: 63.56 kg

DRUGS (1)
  1. PROAIR HFA [Suspect]
     Dosage: 2 PUFFS DAILY
     Dates: start: 20110501

REACTIONS (1)
  - THROAT IRRITATION [None]
